FAERS Safety Report 21620948 (Version 1)
Quarter: 2022Q4

REPORT INFORMATION
  Report Type: Spontaneous
  Country: US (occurrence: None)
  Receive Date: 20221118
  Receipt Date: 20221118
  Transmission Date: 20230113
  Serious: No
  Sender: FDA-Public Use
  Company Number: None

PATIENT
  Age: 69 Year
  Sex: Male
  Weight: 124.74 kg

DRUGS (10)
  1. ABIRATERONE [Suspect]
     Active Substance: ABIRATERONE
     Indication: Prostate cancer
     Dosage: FREQUENCY : DAILY;?
     Route: 048
     Dates: start: 202206, end: 20221118
  2. ALFUZOSIN [Concomitant]
  3. AMLODIPINE [Concomitant]
  4. CIPROFLOXACIN [Concomitant]
  5. EMERGEN-C-JOINT HEALTH [Concomitant]
  6. LORATADINE [Concomitant]
  7. LUPRON [Concomitant]
  8. PREDNISONE [Concomitant]
  9. TYLENOL [Concomitant]
     Active Substance: ACETAMINOPHEN
  10. VITAMIN C [Concomitant]

REACTIONS (2)
  - Prostatic specific antigen increased [None]
  - Disease progression [None]
